FAERS Safety Report 5327889-6 (Version None)
Quarter: 2007Q2

REPORT INFORMATION
  Report Type: 
  Country: None (occurrence: None)
  Receive Date: 20070517
  Receipt Date: 20070508
  Transmission Date: 20071010
  Serious: Yes (Hospitalization, Other)
  Sender: FDA-Public Use
  Company Number: US-PFIZER INC-2007037503

PATIENT
  Sex: Female

DRUGS (2)
  1. CELEBREX [Suspect]
     Indication: PAIN
     Dosage: DAILY DOSE:200MG
     Dates: start: 20040324, end: 20040401
  2. BEXTRA [Suspect]
     Indication: PAIN
     Dosage: DAILY DOSE:10MG
     Dates: start: 20040201, end: 20040401

REACTIONS (1)
  - ISCHAEMIC STROKE [None]
